FAERS Safety Report 20292561 (Version 2)
Quarter: 2022Q1

REPORT INFORMATION
  Report Type: Report from Study
  Country: CH (occurrence: CH)
  Receive Date: 20220104
  Receipt Date: 20220106
  Transmission Date: 20220423
  Serious: Yes (Hospitalization)
  Sender: FDA-Public Use
  Company Number: CH-BRISTOL-MYERS SQUIBB COMPANY-BMS-2021-141459

PATIENT
  Age: 59 Year
  Sex: Male
  Weight: 80.9 kg

DRUGS (4)
  1. BMS-986218 [Suspect]
     Active Substance: BMS-986218
     Indication: Colorectal cancer
     Dosage: 40 MILLIGRAM, Q4WK
     Route: 042
     Dates: start: 20210823
  2. NIVOLUMAB [Suspect]
     Active Substance: NIVOLUMAB
     Indication: Colorectal cancer
     Dosage: 480 MILLIGRAM, Q4WK
     Route: 042
     Dates: start: 20210823
  3. SODIUM CHLORIDE [Concomitant]
     Active Substance: SODIUM CHLORIDE
     Indication: Product used for unknown indication
     Dosage: UNKNOWN
     Route: 065
     Dates: start: 2021
  4. ENOXAPARIN SODIUM [Concomitant]
     Active Substance: ENOXAPARIN SODIUM
     Indication: Product used for unknown indication
     Dosage: 100 MILLIGRAM
     Route: 065
     Dates: start: 2021

REACTIONS (1)
  - Pyrexia [Recovered/Resolved]

NARRATIVE: CASE EVENT DATE: 20211223
